FAERS Safety Report 11408647 (Version 2)
Quarter: 2015Q3

REPORT INFORMATION
  Report Type: Spontaneous
  Country: CA (occurrence: CA)
  Receive Date: 20150822
  Receipt Date: 20150830
  Transmission Date: 20151125
  Serious: Yes (Other)
  Sender: FDA-Public Use
  Company Number: CA-JNJFOC-20150809949

PATIENT
  Age: 12 Month
  Sex: Male
  Weight: 11.34 kg

DRUGS (1)
  1. INFANTS TYLENOL [Suspect]
     Active Substance: ACETAMINOPHEN
     Indication: PYREXIA
     Dosage: MANY TIMES AS NEEDED??(1 DOSE EVERY 4 TO 6 HOURS)
     Route: 048

REACTIONS (2)
  - Haematochezia [Recovered/Resolved]
  - Drug hypersensitivity [Recovered/Resolved]
